FAERS Safety Report 9792771 (Version 2)
Quarter: 2014Q2

REPORT INFORMATION
  Report Type: Spontaneous
  Country: US (occurrence: US)
  Receive Date: 20140102
  Receipt Date: 20140625
  Transmission Date: 20141212
  Serious: Yes (Other)
  Sender: FDA-Public Use
  Company Number: US-SA-2013SA111847

PATIENT
  Age: 50 Year
  Sex: Female

DRUGS (2)
  1. AUBAGIO [Suspect]
     Route: 048
     Dates: start: 201306, end: 201309
  2. TYSABRI [Concomitant]
     Dates: start: 201402

REACTIONS (3)
  - Multiple sclerosis relapse [Unknown]
  - Dizziness [Unknown]
  - Hepatic enzyme increased [Unknown]
